FAERS Safety Report 14225393 (Version 3)
Quarter: 2018Q1

REPORT INFORMATION
  Report Type: Spontaneous
  Country: US (occurrence: US)
  Receive Date: 20171127
  Receipt Date: 20180110
  Transmission Date: 20180508
  Serious: No
  Sender: FDA-Public Use
  Company Number: US-PFIZER INC-2016390766

PATIENT
  Age: 59 Year
  Sex: Female

DRUGS (17)
  1. CALCIUM+D [Concomitant]
     Active Substance: CALCIUM\VITAMIN D
     Dosage: UNK
     Route: 048
  2. ADVIL [Concomitant]
     Active Substance: IBUPROFEN
     Dosage: 800 MG, AS NEEDED (1 TABLET BY MOUTH 3 (THREE) TIMES DAILY)
     Route: 048
     Dates: start: 20160711
  3. DELTASONE [Concomitant]
     Active Substance: PREDNISONE
     Dosage: UNK, (5 TABS ORAL FOR 2 DAYS )
     Route: 048
     Dates: start: 20160707
  4. ZOVIRAX [Concomitant]
     Active Substance: ACYCLOVIR
     Dosage: 800 MG, 3X/DAY
     Route: 048
     Dates: start: 20161223
  5. MULTIPLE VITAMIN-MINERALS [Concomitant]
     Dosage: UNK
     Route: 048
  6. CYMBALTA [Concomitant]
     Active Substance: DULOXETINE HYDROCHLORIDE
     Dosage: 20 MG, DAILY
     Route: 048
     Dates: start: 20160610
  7. LYRICA [Suspect]
     Active Substance: PREGABALIN
     Indication: FIBROMYALGIA
     Dosage: 150 MG, 3X/DAY
     Route: 048
     Dates: start: 20160809, end: 20170205
  8. DELTASONE [Concomitant]
     Active Substance: PREDNISONE
     Dosage: UNK, (4 TABS ORAL FOR 2 DAYS)
     Route: 048
  9. FLEXERIL [Concomitant]
     Active Substance: CYCLOBENZAPRINE HYDROCHLORIDE
     Indication: MUSCLE SPASMS
     Dosage: 10 MG, AS NEEDED, (1 TABLET BY MOUTH 3 TIMES A DAY)
     Route: 048
     Dates: start: 20150624
  10. DELTASONE [Concomitant]
     Active Substance: PREDNISONE
     Dosage: UNK, (1 TAB ORAL FOR 2 DAYS)
     Route: 048
  11. DELTASONE [Concomitant]
     Active Substance: PREDNISONE
     Dosage: UNK, (2 TAB ORAL FOR 2 DAYS)
     Route: 048
  12. INDERAL LA [Concomitant]
     Active Substance: PROPRANOLOL HYDROCHLORIDE
     Indication: MIGRAINE
     Dosage: 120 MG, 1X/DAY, (NIGHTLY)
     Route: 048
     Dates: start: 20150403
  13. DELTASONE [Concomitant]
     Active Substance: PREDNISONE
     Dosage: UNK, (3 TABS ORAL FOR 2 DAYS)
     Route: 048
  14. ULTRAM [Concomitant]
     Active Substance: TRAMADOL HYDROCHLORIDE
     Dosage: 100 MG, AS NEEDED, (2 TABLETS BY MOUTH 3 (THREE) TIMES DAILY)
     Route: 048
     Dates: start: 20160711, end: 20160810
  15. ESTRACE [Concomitant]
     Active Substance: ESTRADIOL
     Dosage: UNK
     Route: 067
     Dates: start: 20140815
  16. NORCO [Concomitant]
     Active Substance: ACETAMINOPHEN\HYDROCODONE BITARTRATE
     Dosage: UNK, AS NEEDED, [HYDROCODONE BITARTRATE 7.5 MG]-[PARACETAMOL 325MG], TAKE 1-2 TABLETS EVERY 6 HOURS
     Route: 048
     Dates: start: 20160711, end: 20160810
  17. MOTRIN [Concomitant]
     Active Substance: IBUPROFEN
     Dosage: 800 MG, AS NEEDED, (1 TABLET BY MOUTH 3 (THREE) TIMES DAILY)
     Route: 048
     Dates: start: 20160711

REACTIONS (2)
  - Drug withdrawal syndrome [Unknown]
  - Malaise [Unknown]
